FAERS Safety Report 4728572-8 (Version None)
Quarter: 2005Q3

REPORT INFORMATION
  Report Type: 
  Country: None (occurrence: None)
  Receive Date: 20050727
  Receipt Date: 20050708
  Transmission Date: 20060218
  Serious: Yes (Hospitalization)
  Sender: FDA-Public Use
  Company Number: ATO-05-0259

PATIENT
  Age: 77 Year
  Sex: Male
  Weight: 71.8 kg

DRUGS (2)
  1. TRISENOX [Suspect]
     Indication: MYELODYSPLASTIC SYNDROME
     Dosage: 0.25 MG/KG/DAY (0.25 MG/KG, 5X/WK),IVI
     Route: 042
     Dates: start: 20050705, end: 20050706
  2. ARA-C [Suspect]
     Indication: MYELODYSPLASTIC SYNDROME
     Dosage: 10 MG/M2 (10 MG/M2,BIX X 14 DAYS), IVI
     Route: 042
     Dates: start: 20050705, end: 20050706

REACTIONS (2)
  - CHEST PAIN [None]
  - RESPIRATORY DISTRESS [None]
